FAERS Safety Report 8575414-9 (Version None)
Quarter: 2012Q3

REPORT INFORMATION
  Report Type: 
  Country: None (occurrence: None)
  Receive Date: 20120807
  Receipt Date: 20120802
  Transmission Date: 20120928
  Serious: Yes (Hospitalization, Other)
  Sender: FDA-Public Use
  Company Number: US-ABBOTT-12P-163-0954428-00

PATIENT
  Age: 41 Year
  Sex: Female

DRUGS (7)
  1. HUMIRA [Suspect]
     Route: 058
     Dates: start: 20120706, end: 20120706
  2. HUMIRA [Suspect]
     Indication: CROHN'S DISEASE
     Route: 058
     Dates: start: 20120608, end: 20120608
  3. HUMIRA [Suspect]
     Route: 058
     Dates: start: 20120622, end: 20120622
  4. HUMIRA [Suspect]
     Indication: CROHN'S DISEASE
     Dates: start: 20120706
  5. PREDNISONE [Suspect]
     Indication: CROHN'S DISEASE
     Dates: end: 20120601
  6. HYDROCODONE BITARTRATE [Concomitant]
     Indication: PAIN
  7. TYLENOL [Concomitant]
     Indication: PYREXIA

REACTIONS (8)
  - APPENDICITIS [None]
  - INTESTINAL MASS [None]
  - NIGHT SWEATS [None]
  - HYPOAESTHESIA [None]
  - ALOPECIA [None]
  - CHILLS [None]
  - POSTOPERATIVE WOUND INFECTION [None]
  - PYREXIA [None]
